FAERS Safety Report 4990233-8 (Version None)
Quarter: 2006Q2

REPORT INFORMATION
  Report Type: 
  Country: None (occurrence: None)
  Receive Date: 20060503
  Receipt Date: 20060425
  Transmission Date: 20061013
  Serious: Yes (Other)
  Sender: FDA-Public Use
  Company Number: SA-AVENTIS-200614357GDDC

PATIENT
  Age: 40 Year
  Sex: Female

DRUGS (2)
  1. GLIMEPIRIDE [Suspect]
     Indication: DIABETES MELLITUS NON-INSULIN-DEPENDENT
     Route: 048
     Dates: start: 20060324, end: 20060325
  2. CONCOR [Concomitant]

REACTIONS (4)
  - ABDOMINAL PAIN [None]
  - DIARRHOEA [None]
  - FATIGUE [None]
  - VOMITING [None]
